FAERS Safety Report 5961311-1 (Version None)
Quarter: 2008Q4

REPORT INFORMATION
  Report Type: 
  Country: None (occurrence: None)
  Receive Date: 20081119
  Receipt Date: 20081113
  Transmission Date: 20090506
  Serious: Yes (Other)
  Sender: FDA-Public Use
  Company Number: 036761

PATIENT
  Sex: Female

DRUGS (1)
  1. PLAN B [Suspect]
     Indication: CONTRACEPTION
     Dosage: TABLET, ORAL
     Route: 048

REACTIONS (2)
  - BLOOD URINE PRESENT [None]
  - HAEMATEMESIS [None]
